FAERS Safety Report 4687824-0 (Version None)
Quarter: 2005Q2

REPORT INFORMATION
  Report Type: 
  Country: None (occurrence: None)
  Receive Date: 20050610
  Receipt Date: 20050530
  Transmission Date: 20051028
  Serious: Yes (Hospitalization)
  Sender: FDA-Public Use
  Company Number: CN-JNJFOC-20050503459

PATIENT
  Age: 55 Year
  Sex: Female

DRUGS (1)
  1. NIZORAL [Suspect]
     Indication: ONYCHOMYCOSIS
     Route: 049

REACTIONS (2)
  - INJURY [None]
  - LIVER FUNCTION TEST ABNORMAL [None]
